FAERS Safety Report 6937468-2 (Version None)
Quarter: 2010Q3

REPORT INFORMATION
  Report Type: 
  Country: None (occurrence: None)
  Receive Date: 20100823
  Receipt Date: 20100823
  Transmission Date: 20110219
  Serious: Yes (Life-Threatening, Hospitalization)
  Sender: FDA-Public Use
  Company Number: None

PATIENT
  Sex: Female
  Weight: 63.05 kg

DRUGS (1)
  1. ISOSORBIDE MN 30 MG KREMERS URBAN [Suspect]
     Indication: ANGINA PECTORIS
     Dosage: 30 MG 1 TAB DAILY PO
     Route: 048
     Dates: start: 20100626, end: 20100810

REACTIONS (9)
  - ASTHENIA [None]
  - BLOOD PRESSURE ABNORMAL [None]
  - CATARACT [None]
  - FATIGUE [None]
  - FEELING ABNORMAL [None]
  - HYPERHIDROSIS [None]
  - PRESYNCOPE [None]
  - SKIN DISCOLOURATION [None]
  - SOMNOLENCE [None]
